FAERS Safety Report 10187701 (Version 1)
Quarter: 2014Q2

REPORT INFORMATION
  Report Type: Spontaneous
  Country: US (occurrence: US)
  Receive Date: 20140522
  Receipt Date: 20140522
  Transmission Date: 20141212
  Serious: No
  Sender: FDA-Public Use
  Company Number: US-SANOFI-AVENTIS-2013SA077958

PATIENT
  Age: 64 Year
  Sex: Male

DRUGS (3)
  1. LANTUS SOLOSTAR [Suspect]
     Dosage: DOSE:45 UNIT(S)
     Route: 058
  2. NOVOLOG [Suspect]
     Route: 065
  3. SOLOSTAR [Concomitant]

REACTIONS (5)
  - Hypersomnia [Unknown]
  - Dizziness [Unknown]
  - Incoherent [Unknown]
  - Hypoaesthesia [Unknown]
  - Blood glucose increased [Unknown]
